FAERS Safety Report 19251303 (Version 2)
Quarter: 2021Q3

REPORT INFORMATION
  Report Type: Report from Study
  Country: US (occurrence: US)
  Receive Date: 20210513
  Receipt Date: 20210716
  Transmission Date: 20211014
  Serious: No
  Sender: FDA-Public Use
  Company Number: US-ACADIA PHARMACEUTICALS INC.-ACA-2021-PIM-001503

PATIENT
  Age: 74 Year
  Sex: Female

DRUGS (15)
  1. POTASSIUM [Concomitant]
     Active Substance: POTASSIUM
  2. COVID?19 VACCINE NOS. [Suspect]
     Active Substance: COVID-19 VACCINE NOS
     Dosage: UNK
     Dates: start: 202104
  3. CARBIDOPA/LEVODOPA [Concomitant]
     Active Substance: CARBIDOPA\LEVODOPA
  4. ELIQUIS [Concomitant]
     Active Substance: APIXABAN
  5. PRILOSEC [Concomitant]
     Active Substance: OMEPRAZOLE MAGNESIUM
  6. DULOXETINE. [Concomitant]
     Active Substance: DULOXETINE
  7. METOPROLOL. [Concomitant]
     Active Substance: METOPROLOL
  8. TORSEMIDE. [Concomitant]
     Active Substance: TORSEMIDE
  9. NUPLAZID [Suspect]
     Active Substance: PIMAVANSERIN TARTRATE
     Indication: PARKINSON^S DISEASE PSYCHOSIS
     Dosage: 34 MILLIGRAM, QD
     Route: 048
     Dates: start: 20210407, end: 20210420
  10. ATIVAN [Concomitant]
     Active Substance: LORAZEPAM
     Dosage: PRN
  11. MELATONIN [Concomitant]
     Active Substance: MELATONIN
  12. NUPLAZID [Suspect]
     Active Substance: PIMAVANSERIN TARTRATE
     Indication: HALLUCINATION
     Dosage: 34 MILLIGRAM, QD
     Route: 048
     Dates: start: 202104
  13. NUPLAZID [Suspect]
     Active Substance: PIMAVANSERIN TARTRATE
     Indication: DELUSION
  14. MIDODRINE [Concomitant]
     Active Substance: MIDODRINE
  15. TYLENOL [Concomitant]
     Active Substance: ACETAMINOPHEN

REACTIONS (7)
  - Screaming [Recovered/Resolved]
  - Drug ineffective [Not Recovered/Not Resolved]
  - Hallucination [Not Recovered/Not Resolved]
  - Confusional state [Not Recovered/Not Resolved]
  - Product dose omission issue [Recovered/Resolved]
  - Therapeutic product effect incomplete [Unknown]
  - Abnormal behaviour [Recovered/Resolved]

NARRATIVE: CASE EVENT DATE: 202104
